FAERS Safety Report 9267439 (Version 1)
Quarter: 2013Q2

REPORT INFORMATION
  Report Type: Spontaneous
  Country: US (occurrence: US)
  Receive Date: 20130502
  Receipt Date: 20130502
  Transmission Date: 20140414
  Serious: Yes (Death, Other)
  Sender: FDA-Public Use
  Company Number: US-PURDUE-USA-2013-0101804

PATIENT
  Sex: Female

DRUGS (2)
  1. OXYCODONE HYDROCHLORIDE (SIMILAR TO NDA 22-272) [Suspect]
     Indication: FOETAL EXPOSURE DURING PREGNANCY
  2. METHADONE [Suspect]
     Indication: FOETAL EXPOSURE DURING PREGNANCY

REACTIONS (2)
  - Gastroschisis [Fatal]
  - Foetal exposure during pregnancy [Recovered/Resolved]
